FAERS Safety Report 25708851 (Version 1)
Quarter: 2025Q3

REPORT INFORMATION
  Report Type: Other
  Country: CN (occurrence: CN)
  Receive Date: 20250821
  Receipt Date: 20250821
  Transmission Date: 20251021
  Serious: Yes (Other)
  Sender: ESTEVE
  Company Number: CN-Esteve Pharmaceuticals SA-2182918

PATIENT
  Age: 30 Year
  Sex: Male
  Weight: 120 kg

DRUGS (1)
  1. LYSODREN [Suspect]
     Active Substance: MITOTANE
     Indication: Adrenocortical carcinoma
     Dates: start: 20250704, end: 20250806

REACTIONS (3)
  - Dysgeusia [Unknown]
  - Hepatic enzyme increased [Recovering/Resolving]
  - Hiccups [Recovering/Resolving]

NARRATIVE: CASE EVENT DATE: 20250806
